FAERS Safety Report 8827640 (Version 2)
Quarter: 2014Q3

REPORT INFORMATION
  Report Type: Report from Study
  Country: US (occurrence: US)
  Receive Date: 20121005
  Receipt Date: 20140917
  Transmission Date: 20150326
  Serious: Yes (Death, Hospitalization, Other)
  Sender: FDA-Public Use
  Company Number: US-ROCHE-1096749

PATIENT
  Age: 64 Year
  Sex: Female

DRUGS (5)
  1. CYCLOPHOSPHAMIDE. [Concomitant]
     Active Substance: CYCLOPHOSPHAMIDE
  2. ONCOVIN [Concomitant]
     Active Substance: VINCRISTINE SULFATE
  3. PREDNISONE. [Concomitant]
     Active Substance: PREDNISONE
  4. RITUXAN [Suspect]
     Active Substance: RITUXIMAB
     Indication: CHRONIC LYMPHOCYTIC LEUKAEMIA
     Route: 042
  5. HYDROXYDAUNORUBICIN [Concomitant]
     Active Substance: DOXORUBICIN

REACTIONS (22)
  - Asthenia [Unknown]
  - Malaise [Unknown]
  - Hyponatraemia [Unknown]
  - General physical health deterioration [Fatal]
  - Chronic sinusitis [Unknown]
  - Cough [Unknown]
  - Abdominal pain [Unknown]
  - Infection [Unknown]
  - Fatigue [Unknown]
  - Pyrexia [Unknown]
  - Hypophagia [Unknown]
  - Stomatitis [Unknown]
  - Tongue ulceration [Unknown]
  - Nausea [Unknown]
  - Vomiting [Unknown]
  - Decreased appetite [Unknown]
  - Abdominal pain upper [Unknown]
  - Malaise [Unknown]
  - Odynophagia [Unknown]
  - Dehydration [Unknown]
  - Lymphocytic leukaemia [Unknown]
  - Dysphagia [Unknown]

NARRATIVE: CASE EVENT DATE: 20000511
